FAERS Safety Report 18278210 (Version 1)
Quarter: 2020Q3

REPORT INFORMATION
  Report Type: Spontaneous
  Country: US (occurrence: US)
  Receive Date: 20200917
  Receipt Date: 20200917
  Transmission Date: 20201103
  Serious: No
  Sender: FDA-Public Use
  Company Number: US-JNJFOC-20200926220

PATIENT
  Age: 13 Year
  Sex: Female

DRUGS (1)
  1. STELARA [Suspect]
     Active Substance: USTEKINUMAB
     Indication: COLITIS ULCERATIVE
     Route: 058

REACTIONS (5)
  - Abdominal discomfort [Unknown]
  - Product use issue [Unknown]
  - Off label use [Unknown]
  - Abdominal pain upper [Unknown]
  - Decreased appetite [Unknown]
